FAERS Safety Report 4856884-6 (Version None)
Quarter: 2005Q4

REPORT INFORMATION
  Report Type: 
  Country: None (occurrence: None)
  Receive Date: 20051215
  Receipt Date: 20051130
  Transmission Date: 20060501
  Serious: Yes (Hospitalization)
  Sender: FDA-Public Use
  Company Number: WAES 0511MYS00004

PATIENT
  Age: 42 Year
  Sex: Male

DRUGS (7)
  1. COZAAR [Suspect]
     Indication: CARDIAC FAILURE
     Dosage: PO
     Route: 048
     Dates: start: 20040210, end: 20051009
  2. BISOPROLOL [Concomitant]
  3. DIGOXIN [Concomitant]
  4. FENOFIBRATE [Concomitant]
  5. FUROSEMIDE [Concomitant]
  6. RANITIDINE [Concomitant]
  7. SPIRONOLACTONE [Concomitant]

REACTIONS (1)
  - BRONCHOPNEUMONIA [None]
